FAERS Safety Report 11215546 (Version 1)
Quarter: 2015Q2

REPORT INFORMATION
  Report Type: Spontaneous
  Country: US (occurrence: US)
  Receive Date: 20150624
  Receipt Date: 20150624
  Transmission Date: 20150821
  Serious: No
  Sender: FDA-Public Use
  Company Number: US-ELI_LILLY_AND_COMPANY-US201210007303

PATIENT
  Sex: Female

DRUGS (1)
  1. AMYVID [Suspect]
     Active Substance: FLORBETAPIR F-18
     Indication: POSITRON EMISSION TOMOGRAM
     Dosage: UNK
     Dates: start: 20121017

REACTIONS (2)
  - Fatigue [Unknown]
  - Headache [Unknown]
